FAERS Safety Report 4870983-4 (Version None)
Quarter: 2005Q4

REPORT INFORMATION
  Report Type: 
  Country: None (occurrence: None)
  Receive Date: 20051229
  Receipt Date: 20051213
  Transmission Date: 20060501
  Serious: Yes (Other)
  Sender: FDA-Public Use
  Company Number: PHBS2005ES18270

PATIENT
  Sex: Male

DRUGS (1)
  1. VISUDYNE [Suspect]
     Dosage: 15 MG DAILY IV
     Route: 042

REACTIONS (2)
  - PERIPHERAL EMBOLISM [None]
  - PULMONARY EMBOLISM [None]
